FAERS Safety Report 16960917 (Version 1)
Quarter: 2019Q4

REPORT INFORMATION
  Report Type: Spontaneous
  Country: US (occurrence: US)
  Receive Date: 20191025
  Receipt Date: 20191025
  Transmission Date: 20200122
  Serious: No
  Sender: FDA-Public Use
  Company Number: US-PFIZER INC-2019459014

PATIENT
  Sex: Female

DRUGS (1)
  1. PRISTIQ EXTENDED-RELEASE [Suspect]
     Active Substance: DESVENLAFAXINE SUCCINATE
     Indication: DEPRESSED MOOD
     Dosage: 200 MG, DAILY

REACTIONS (3)
  - Drug ineffective [Unknown]
  - Withdrawal syndrome [Unknown]
  - Prescribed overdose [Unknown]
